FAERS Safety Report 6384089-9 (Version None)
Quarter: 2009Q4

REPORT INFORMATION
  Report Type: 
  Country: None (occurrence: None)
  Receive Date: 20091001
  Receipt Date: 20090930
  Transmission Date: 20100525
  Serious: Yes (Other)
  Sender: FDA-Public Use
  Company Number: BR-PFIZER INC-2009261834

PATIENT
  Age: 6 Year

DRUGS (3)
  1. XALATAN [Suspect]
     Indication: GLAUCOMA
     Dosage: UNK
     Route: 047
     Dates: start: 20050101
  2. TIMOLOL MALEATE [Concomitant]
     Dosage: UNK
  3. PRED FORTE [Concomitant]
     Dosage: UNK

REACTIONS (5)
  - CORNEAL GRAFT REJECTION [None]
  - CORNEAL TRANSPLANT [None]
  - EYE OPERATION [None]
  - EYE PAIN [None]
  - INTRAOCULAR PRESSURE INCREASED [None]
